FAERS Safety Report 4433097-3 (Version None)
Quarter: 2004Q3

REPORT INFORMATION
  Report Type: 
  Country: None (occurrence: None)
  Receive Date: 20040823
  Receipt Date: 20040817
  Transmission Date: 20050211
  Serious: Yes (Death)
  Sender: FDA-Public Use
  Company Number: USA-2004-0016080

PATIENT
  Age: 37 Year
  Sex: Female
  Weight: 69.4 kg

DRUGS (7)
  1. MORPHINE SULFATE [Suspect]
     Dosage: MG
  2. OXYCODONE HCL [Suspect]
  3. ETHANOL (ETHANOL) [Suspect]
  4. ACETAMINOPHEN [Concomitant]
  5. NICOTINE [Suspect]
  6. TRAZODONE HCL [Suspect]
  7. METOCLOPRAMIDE [Suspect]

REACTIONS (9)
  - ALCOHOLISM [None]
  - CARDIOMEGALY [None]
  - COMA [None]
  - DRUG TOXICITY [None]
  - HEPATIC CIRRHOSIS [None]
  - HEPATIC STEATOSIS [None]
  - MULTIPLE DRUG OVERDOSE [None]
  - PULMONARY CONGESTION [None]
  - PULMONARY OEDEMA [None]
